FAERS Safety Report 9826218 (Version 1)
Quarter: 2014Q1

REPORT INFORMATION
  Report Type: Spontaneous
  Country: GR (occurrence: GR)
  Receive Date: 20140117
  Receipt Date: 20140117
  Transmission Date: 20141002
  Serious: No
  Sender: FDA-Public Use
  Company Number: GR-009507513-1401GRC005925

PATIENT
  Age: 58 Year
  Sex: Male

DRUGS (10)
  1. CASPOFUNGIN ACETATE [Suspect]
     Dosage: UNK
  2. POSACONAZOLE [Concomitant]
     Dosage: UNK
     Route: 048
  3. TACROLIMUS [Concomitant]
  4. SULFAMETHOXAZOLE (+) TRIMETHOPRIM [Concomitant]
  5. ACYCLOVIR [Concomitant]
     Dosage: UNK
  6. METHYLPREDNISOLONE SODIUM SUCCINATE [Concomitant]
  7. METFORMIN [Concomitant]
  8. INSULIN [Concomitant]
  9. VORICONAZOLE [Concomitant]
  10. AMPHOTERICIN B (+) CHOLESTEROL (+) DISTEAROYLPHOSPHATIDYLGLYCEROL (+) [Concomitant]

REACTIONS (1)
  - Drug ineffective [Unknown]
